FAERS Safety Report 21907086 (Version 1)
Quarter: 2023Q1

REPORT INFORMATION
  Report Type: Spontaneous
  Country: US (occurrence: US)
  Receive Date: 20230125
  Receipt Date: 20230125
  Transmission Date: 20230417
  Serious: Yes (Hospitalization, Disabling, Other)
  Sender: FDA-Public Use
  Company Number: US-009507513-1207USA006540

PATIENT
  Sex: Female
  Weight: 55.646 kg

DRUGS (6)
  1. FOSAMAX [Suspect]
     Active Substance: ALENDRONATE SODIUM
     Indication: Osteoporosis
     Dosage: 10 MG, QD
     Route: 048
     Dates: start: 199612, end: 200009
  2. FOSAMAX [Suspect]
     Active Substance: ALENDRONATE SODIUM
     Dosage: 70 MG, UNK
     Route: 048
     Dates: start: 200010, end: 200202
  3. FOSAMAX [Suspect]
     Active Substance: ALENDRONATE SODIUM
     Dosage: 70 MG, UNK
     Route: 048
     Dates: start: 200305, end: 200409
  4. FOSAMAX [Suspect]
     Active Substance: ALENDRONATE SODIUM
     Dosage: 70 MG, UNK
     Route: 048
     Dates: start: 200807, end: 200910
  5. FOSAMAX [Suspect]
     Active Substance: ALENDRONATE SODIUM
     Dosage: UNK
     Route: 048
  6. BONIVA [Suspect]
     Active Substance: IBANDRONATE SODIUM
     Indication: Osteoporosis
     Dosage: 150 MG, UNK
     Route: 048
     Dates: start: 200605, end: 200807

REACTIONS (77)
  - Femur fracture [Recovered/Resolved]
  - Femur fracture [Not Recovered/Not Resolved]
  - Stress fracture [Not Recovered/Not Resolved]
  - Osteoporosis [Not Recovered/Not Resolved]
  - Low turnover osteopathy [Not Recovered/Not Resolved]
  - Intramedullary rod insertion [Unknown]
  - Rotator cuff syndrome [Unknown]
  - Shoulder arthroplasty [Unknown]
  - Rotator cuff repair [Unknown]
  - Loss of consciousness [Unknown]
  - Open reduction of fracture [Unknown]
  - Intramedullary rod insertion [Unknown]
  - Femur fracture [Unknown]
  - Medical device removal [Unknown]
  - Femur fracture [Unknown]
  - Femur fracture [Unknown]
  - Basedow^s disease [Unknown]
  - Hypothyroidism [Not Recovered/Not Resolved]
  - Lumbar vertebral fracture [Unknown]
  - Adverse event [Unknown]
  - Adverse event [Unknown]
  - Hypertension [Unknown]
  - Fracture delayed union [Recovering/Resolving]
  - Rotator cuff syndrome [Unknown]
  - Blood cholesterol increased [Unknown]
  - Adverse event [Unknown]
  - Sinusitis [Unknown]
  - Fibrocystic breast disease [Unknown]
  - Osteoarthritis [Unknown]
  - Anxiety [Unknown]
  - Dyspnoea [Unknown]
  - Chest pain [Unknown]
  - Urinary tract infection [Unknown]
  - Insomnia [Unknown]
  - Blood urine present [Unknown]
  - Urine leukocyte esterase [Unknown]
  - Balance disorder [Unknown]
  - Palpitations [Unknown]
  - Arthritis [Unknown]
  - Impaired healing [Unknown]
  - Contusion [Unknown]
  - Road traffic accident [Unknown]
  - Hiatus hernia [Unknown]
  - Migraine [Unknown]
  - Gastrointestinal disorder [Unknown]
  - Wound drainage [Unknown]
  - Kyphosis [Unknown]
  - Coordination abnormal [Unknown]
  - Amnesia [Unknown]
  - Fatigue [Unknown]
  - Gait disturbance [Unknown]
  - Muscular weakness [Unknown]
  - Back pain [Unknown]
  - Back pain [Unknown]
  - Fall [Unknown]
  - Rib fracture [Unknown]
  - Peripheral swelling [Unknown]
  - Gait disturbance [Unknown]
  - Trigger points [Unknown]
  - Osteoarthritis [Unknown]
  - Glaucoma [Unknown]
  - Headache [Unknown]
  - Photosensitivity reaction [Unknown]
  - Osteopenia [Unknown]
  - Gait disturbance [Unknown]
  - Dyspepsia [Unknown]
  - Arthralgia [Recovered/Resolved]
  - Lip swelling [Recovered/Resolved]
  - Arthralgia [Unknown]
  - Arthralgia [Recovered/Resolved]
  - Pain in extremity [Unknown]
  - Muscle spasms [Unknown]
  - Arthralgia [Unknown]
  - Pain in extremity [Unknown]
  - Oedema peripheral [Unknown]
  - Arthralgia [Unknown]
  - Scoliosis [Unknown]

NARRATIVE: CASE EVENT DATE: 19970101
